FAERS Safety Report 9026376 (Version 1)
Quarter: 2012Q4

REPORT INFORMATION
  Report Type: Spontaneous
  Country: GB (occurrence: None)
  Receive Date: 20121211
  Receipt Date: 20121211
  Transmission Date: 20130627
  Serious: Yes (Other)
  Sender: FDA-Public Use
  Company Number: AUR-APL-2012-05175

PATIENT
  Age: 67 Year
  Sex: Female

DRUGS (3)
  1. FLUOXETINE [Suspect]
     Indication: DRUG USE FOR UNKNOWN INDICATION
  2. LANSOPRAZOLE (LANSOPRAZOLE) [Suspect]
     Indication: GASTROESOPHAGEAL REFLUX
  3. LANSOPRAZOLE (LANSOPRAZOLE) [Suspect]
     Indication: GASTROESOPHAGEAL REFLUX

REACTIONS (7)
  - Arthritis [None]
  - Dizziness [None]
  - Headache [None]
  - Malaise [None]
  - Fatigue [None]
  - Vitamin D deficiency [None]
  - Adverse event [None]
